FAERS Safety Report 10516737 (Version 1)
Quarter: 2014Q4

REPORT INFORMATION
  Report Type: Report from Study
  Country: US (occurrence: US)
  Receive Date: 20141014
  Receipt Date: 20141014
  Transmission Date: 20150528
  Serious: Yes (Hospitalization, Other)
  Sender: FDA-Public Use
  Company Number: US-ALEXION PHARMACEUTICALS INC-A200901535

PATIENT
  Age: 44 Year
  Sex: Female

DRUGS (1)
  1. SOLIRIS [Suspect]
     Active Substance: ECULIZUMAB
     Indication: PAROXYSMAL NOCTURNAL HAEMOGLOBINURIA

REACTIONS (19)
  - Dyspnoea [Unknown]
  - Abdominal pain [Unknown]
  - Pain in extremity [Unknown]
  - Central venous catheterisation [Unknown]
  - Malaise [Unknown]
  - Neuropathy peripheral [Unknown]
  - Headache [Unknown]
  - Haemoglobinuria [Unknown]
  - Chest pain [Unknown]
  - Blood lactate dehydrogenase increased [Unknown]
  - Fatigue [Unknown]
  - Viral infection [Unknown]
  - Myalgia [Unknown]
  - Sinus congestion [Unknown]
  - Nasopharyngitis [Unknown]
  - Asthenia [Unknown]
  - Arthralgia [Unknown]
  - Deafness bilateral [Unknown]
  - Anaemia [Unknown]

NARRATIVE: CASE EVENT DATE: 201105
